FAERS Safety Report 8780460 (Version 1)
Quarter: 2012Q4

REPORT INFORMATION
  Report Type: Spontaneous
  Country: GB (occurrence: None)
  Receive Date: 20120830
  Receipt Date: 20120830
  Transmission Date: 20130627
  Serious: Yes (Other)
  Sender: FDA-Public Use
  Company Number: FK201202430

PATIENT
  Age: 68 Year
  Sex: Male

DRUGS (8)
  1. CEFTRIAXONE [Suspect]
     Dosage: Intravenous (not otherwise specified)
     Route: 042
  2. PANTOPRAZOLE [Concomitant]
  3. CLEXANE (ENOXAPARIN SODIUM) [Concomitant]
  4. BISOPROLOL [Concomitant]
  5. RAMIPRIL [Concomitant]
  6. TRAMADOL [Concomitant]
  7. MIRTAZAPINE [Concomitant]
  8. ASS 100 (ACETYLSALICYLIC ACID) [Concomitant]

REACTIONS (1)
  - Delirium [None]
